FAERS Safety Report 16068460 (Version 1)
Quarter: 2019Q1

REPORT INFORMATION
  Report Type: Spontaneous
  Country: US (occurrence: US)
  Receive Date: 20190313
  Receipt Date: 20190313
  Transmission Date: 20190418
  Serious: Yes (Other)
  Sender: FDA-Public Use
  Company Number: US-AMGEN-USASP2019037065

PATIENT
  Age: 47 Year
  Sex: Male

DRUGS (1)
  1. ETANERCEPT [Suspect]
     Active Substance: ETANERCEPT
     Indication: ANKYLOSING SPONDYLITIS
     Dosage: UNK
     Route: 065

REACTIONS (7)
  - Ankylosing spondylitis [Unknown]
  - Chronic gastritis [Recovered/Resolved]
  - Duodenitis [Recovered/Resolved]
  - Paradoxical drug reaction [Recovered/Resolved]
  - Protein-losing gastroenteropathy [Recovered/Resolved]
  - Hypoalbuminaemia [Recovered/Resolved]
  - Granuloma [Recovered/Resolved]
